FAERS Safety Report 9397975 (Version 1)
Quarter: 2013Q3

REPORT INFORMATION
  Report Type: Spontaneous
  Country: GB (occurrence: GB)
  Receive Date: 20130712
  Receipt Date: 20130712
  Transmission Date: 20140515
  Serious: Yes (Disabling, Other)
  Sender: FDA-Public Use
  Company Number: PHHY2013GB071442

PATIENT
  Age: 63 Year
  Sex: Male
  Weight: 59 kg

DRUGS (4)
  1. OMEPRAZOLE [Suspect]
     Dosage: 40 MG
     Dates: start: 20130227
  2. VFEND [Interacting]
     Indication: CEREBRAL ASPERGILLOSIS
     Dosage: 6 MG/KG
     Route: 065
     Dates: start: 20130227
  3. VFEND [Interacting]
     Dosage: 4 MG/KG
     Route: 065
  4. VFEND [Interacting]
     Dosage: 6 MG/KG

REACTIONS (2)
  - Toxicity to various agents [Not Recovered/Not Resolved]
  - Drug level increased [Not Recovered/Not Resolved]
